FAERS Safety Report 10597308 (Version 1)
Quarter: 2014Q4

REPORT INFORMATION
  Report Type: Spontaneous
  Country: US (occurrence: US)
  Receive Date: 20141121
  Receipt Date: 20141121
  Transmission Date: 20150529
  Serious: Yes (Other)
  Sender: FDA-Public Use
  Company Number: US-PAR PHARMACEUTICAL, INC-2014SCPR009508

PATIENT

DRUGS (3)
  1. DORIPENEM [Concomitant]
     Active Substance: DORIPENEM
     Indication: PNEUMONIA
     Dosage: 500 MG, TID
     Route: 042
  2. TIGECYCLINE [Concomitant]
     Active Substance: TIGECYCLINE
     Indication: PNEUMONIA
     Dosage: 50 MG, BID
     Route: 042
  3. COLY-MYCIN M [Suspect]
     Active Substance: COLISTIMETHATE SODIUM
     Indication: PNEUMONIA
     Dosage: 275 MG, BID
     Route: 042

REACTIONS (6)
  - Toxic encephalopathy [Recovered/Resolved]
  - Coma [Recovered/Resolved]
  - Neuromuscular blockade [Recovered/Resolved]
  - Renal tubular necrosis [Recovered/Resolved]
  - Apnoea [Recovered/Resolved]
  - Neurotoxicity [None]
